FAERS Safety Report 5881656-3 (Version None)
Quarter: 2008Q3

REPORT INFORMATION
  Report Type: 
  Country: None (occurrence: None)
  Receive Date: 20080912
  Receipt Date: 20080708
  Transmission Date: 20090109
  Serious: No
  Sender: FDA-Public Use
  Company Number: US-ABBOTT-08P-163-0461536-00

PATIENT
  Sex: Female
  Weight: 82.174 kg

DRUGS (9)
  1. HUMIRA [Suspect]
     Indication: RHEUMATOID ARTHRITIS
     Dosage: PEN
     Route: 050
     Dates: start: 20080607
  2. BLOPRESS PLUS [Concomitant]
     Indication: BLOOD PRESSURE
     Dosage: 16/12.5
     Route: 048
  3. FOLIC ACID [Concomitant]
     Indication: DRUG USE FOR UNKNOWN INDICATION
     Route: 048
  4. MONTELUKAST SODIUM [Concomitant]
     Indication: HYPERSENSITIVITY
     Route: 048
  5. CLONAZEPAM [Concomitant]
     Indication: ESSENTIAL TREMOR
     Route: 048
  6. TRAMADOL HCL [Concomitant]
     Indication: ABDOMINAL PAIN
     Route: 048
  7. IBANDRONATE SODIUM [Concomitant]
     Indication: BONE DISORDER
     Route: 048
  8. IBANDRONATE SODIUM [Concomitant]
     Indication: OSTEOPENIA
  9. SUMATRIPTAN SUCCINATE [Concomitant]
     Indication: MIGRAINE
     Route: 048

REACTIONS (3)
  - ACCIDENTAL EXPOSURE [None]
  - INCREASED APPETITE [None]
  - WEIGHT INCREASED [None]
